FAERS Safety Report 8856508 (Version 1)
Quarter: 2012Q4

REPORT INFORMATION
  Report Type: Spontaneous
  Country: US (occurrence: None)
  Receive Date: 20121024
  Receipt Date: 20121024
  Transmission Date: 20130627
  Serious: Yes (Death)
  Sender: FDA-Public Use
  Company Number: None

PATIENT
  Age: 79 Year
  Sex: Female
  Weight: 65.77 kg

DRUGS (5)
  1. METHYLPREDNISOLONE ACETATE [Suspect]
     Indication: LOW BACK PAIN
     Dosage: 1 time
     Route: 014
     Dates: start: 20120802
  2. METHYLPREDNISOLONE ACETATE [Suspect]
     Indication: LOW BACK PAIN
     Dosage: 1 TIME
     Route: 014
     Dates: start: 20120828
  3. OMNIPAQUE PF [Concomitant]
  4. LIDOCAINE PF [Concomitant]
  5. CHLORAPREP [Concomitant]

REACTIONS (2)
  - Meningitis [None]
  - Altered state of consciousness [None]
